FAERS Safety Report 16215331 (Version 1)
Quarter: 2019Q2

REPORT INFORMATION
  Report Type: Spontaneous
  Country: US (occurrence: US)
  Receive Date: 20190314
  Receipt Date: 20190314
  Transmission Date: 20190711
  Serious: No
  Sender: FDA-Public Use
  Company Number: None

PATIENT
  Age: 68 Year
  Sex: Male
  Weight: 101.97 kg

DRUGS (2)
  1. LISINOPRIL. [Suspect]
     Active Substance: LISINOPRIL
     Indication: HYPERTENSION
     Route: 048
     Dates: start: 20071204, end: 20181207
  2. AMOXICILLIN. [Suspect]
     Active Substance: AMOXICILLIN
     Indication: SWELLING
     Dates: start: 20181207, end: 20181207

REACTIONS (2)
  - Therapy cessation [None]
  - Angioedema [None]

NARRATIVE: CASE EVENT DATE: 20181207
